FAERS Safety Report 6072800-6 (Version None)
Quarter: 2009Q1

REPORT INFORMATION
  Report Type: 
  Country: None (occurrence: None)
  Receive Date: 20090205
  Receipt Date: 20090128
  Transmission Date: 20090719
  Serious: Yes (Life-Threatening, Hospitalization)
  Sender: FDA-Public Use
  Company Number: CLOF-10794

PATIENT
  Age: 74 Year
  Sex: Male

DRUGS (11)
  1. CLOFARABINE AND/OR ARA-C (CODE NOT BROKEN) SOLUTION FOR INFUSION [Suspect]
     Indication: MYELOID LEUKAEMIA
     Dates: start: 20071203, end: 20071203
  2. ALLOPURINOL [Concomitant]
  3. ASPIRIN [Concomitant]
  4. CENTRUM (VITAMINS NOS, MINERALS NOS) [Concomitant]
  5. COLCHICINE (COLCHICINE) [Concomitant]
  6. FLOMAX (MORNIFLUMATE) [Concomitant]
  7. GLIPIZIDE [Concomitant]
  8. LIPITOR [Concomitant]
  9. HYDROCHLOROTHIAZIDE LISINOPRIL (HYDROCHLOROTHIAZIDE) [Concomitant]
  10. NORVASC [Concomitant]
  11. PREVACID [Concomitant]

REACTIONS (36)
  - AORTIC VALVE SCLEROSIS [None]
  - ARRHYTHMIA [None]
  - ASTHENIA [None]
  - BLOOD GLUCOSE INCREASED [None]
  - BRADYCARDIA [None]
  - CARDIOGENIC SHOCK [None]
  - CONVULSION [None]
  - CORONARY ARTERY STENOSIS [None]
  - DIABETIC AUTONOMIC NEUROPATHY [None]
  - DILATATION VENTRICULAR [None]
  - DRUG HYPERSENSITIVITY [None]
  - DYSPNOEA [None]
  - FATIGUE [None]
  - HAEMATOCRIT INCREASED [None]
  - HAEMOGLOBIN DECREASED [None]
  - HYPOTENSION [None]
  - INFECTION [None]
  - LOSS OF CONSCIOUSNESS [None]
  - MEAN CELL VOLUME INCREASED [None]
  - METABOLIC ACIDOSIS [None]
  - MITRAL VALVE CALCIFICATION [None]
  - MITRAL VALVE INCOMPETENCE [None]
  - MULTI-ORGAN FAILURE [None]
  - MYOCARDIAL INFARCTION [None]
  - MYOCARDIAL ISCHAEMIA [None]
  - NAUSEA [None]
  - NODAL RHYTHM [None]
  - PLATELET COUNT DECREASED [None]
  - PULMONARY CONGESTION [None]
  - RENAL FAILURE ACUTE [None]
  - RESPIRATORY ACIDOSIS [None]
  - RESPIRATORY DISTRESS [None]
  - SEPSIS [None]
  - SEPTIC SHOCK [None]
  - TRICUSPID VALVE INCOMPETENCE [None]
  - WHITE BLOOD CELL COUNT DECREASED [None]
